FAERS Safety Report 5130981-2 (Version None)
Quarter: 2006Q4

REPORT INFORMATION
  Report Type: 
  Country: None (occurrence: None)
  Receive Date: 20060829
  Receipt Date: 20060719
  Transmission Date: 20070319
  Serious: Yes (Other)
  Sender: FDA-Public Use
  Company Number: PHEH2006US04310

PATIENT
  Age: 66 Year
  Sex: Female

DRUGS (13)
  1. EXJADE [Suspect]
     Dosage: SEE IMAGE
     Dates: start: 20060313, end: 20060327
  2. EXJADE [Suspect]
     Dosage: SEE IMAGE
     Dates: start: 20060210
  3. EXJADE [Suspect]
     Dosage: SEE IMAGE
     Dates: start: 20060501
  4. REVLAMID (LENALIDOMIDE) [Concomitant]
  5. PREVACID [Concomitant]
  6. ZOLOFT [Concomitant]
  7. COMPAZINE [Concomitant]
  8. AMBIEN [Concomitant]
  9. MULTI-VIT (VITAMINS NOS) [Concomitant]
  10. KYTRIL [Concomitant]
  11. KLOR-CON [Concomitant]
  12. PHENERGAN (PROMETHAZINE HYDROCHLORIDE) [Concomitant]
  13. PROCRIT [Concomitant]

REACTIONS (6)
  - ALANINE AMINOTRANSFERASE INCREASED [None]
  - ASPARTATE AMINOTRANSFERASE INCREASED [None]
  - BLOOD ALKALINE PHOSPHATASE INCREASED [None]
  - HEPATIC ENZYME INCREASED [None]
  - NAUSEA [None]
  - PRURITUS GENERALISED [None]
